FAERS Safety Report 7685133-9 (Version None)
Quarter: 2011Q3

REPORT INFORMATION
  Report Type: 
  Country: None (occurrence: None)
  Receive Date: 20110816
  Receipt Date: 20110810
  Transmission Date: 20111222
  Serious: Yes (Life-Threatening, Other)
  Sender: FDA-Public Use
  Company Number: CN-ASTELLAS-2011JP004951

PATIENT
  Sex: Male

DRUGS (4)
  1. LINEZOLID [Concomitant]
     Route: 065
  2. MEROPENEM [Concomitant]
     Route: 065
  3. FLUCONAZOLE [Concomitant]
     Route: 065
  4. MICAFUNGIN [Suspect]
     Indication: ABDOMINAL INFECTION
     Dosage: 50 MG, UNKNOWN/D
     Route: 065
     Dates: start: 20110716, end: 20110716

REACTIONS (6)
  - RESPIRATORY GAS EXCHANGE DISORDER [None]
  - CYANOSIS [None]
  - HAEMATURIA [None]
  - DYSPNOEA [None]
  - RENAL FAILURE ACUTE [None]
  - HAEMOLYSIS [None]
